FAERS Safety Report 9239002 (Version 2)
Quarter: 2013Q2

REPORT INFORMATION
  Report Type: Spontaneous
  Country: US (occurrence: US)
  Receive Date: 20130418
  Receipt Date: 20130510
  Transmission Date: 20140414
  Serious: Yes (Other)
  Sender: FDA-Public Use
  Company Number: US-PFIZER INC-2013116569

PATIENT
  Age: 79 Year
  Sex: Male

DRUGS (16)
  1. TOVIAZ [Suspect]
     Indication: HYPERTONIC BLADDER
     Dosage: 4 MG, 1X/DAY
     Route: 048
     Dates: start: 201212
  2. TOVIAZ [Suspect]
     Indication: MICTURITION URGENCY
  3. TOVIAZ [Suspect]
     Indication: URINARY INCONTINENCE
  4. LYRICA [Suspect]
     Dosage: 100 MG, 2X/DAY
  5. ACTOS [Concomitant]
     Dosage: UNK
  6. FLUMOX [Concomitant]
     Dosage: UNK
  7. ATENOLOL [Concomitant]
     Dosage: UNK
  8. GLYBURIDE [Concomitant]
     Dosage: UNK
  9. LASIX [Concomitant]
     Dosage: UNK
  10. NIASPAN [Concomitant]
     Dosage: UNK
  11. KLOR-CON [Concomitant]
     Dosage: UNK
  12. PRILOSEC [Concomitant]
     Dosage: UNK
  13. MECLIZINE [Concomitant]
     Dosage: UNK
  14. FISH OIL [Concomitant]
     Dosage: UNK
  15. ASPIRIN [Concomitant]
     Dosage: UNK
  16. CAL MAG [Concomitant]
     Dosage: UNK

REACTIONS (1)
  - Hypoxia [Unknown]
